FAERS Safety Report 20033980 (Version 6)
Quarter: 2022Q1

REPORT INFORMATION
  Report Type: Spontaneous
  Country: US (occurrence: US)
  Receive Date: 20211104
  Receipt Date: 20220329
  Transmission Date: 20220423
  Serious: No
  Sender: FDA-Public Use
  Company Number: US-BIOGEN-2021BI01062552

PATIENT
  Sex: Female

DRUGS (3)
  1. TYSABRI [Suspect]
     Active Substance: NATALIZUMAB
     Indication: Multiple sclerosis
     Route: 065
  2. TYSABRI [Suspect]
     Active Substance: NATALIZUMAB
     Route: 065
     Dates: start: 20120525, end: 20150313
  3. TYSABRI [Suspect]
     Active Substance: NATALIZUMAB
     Route: 065
     Dates: start: 20071010, end: 20080703

REACTIONS (12)
  - Swelling [Unknown]
  - Contusion [Unknown]
  - Lower limb fracture [Unknown]
  - Multiple sclerosis relapse [Unknown]
  - Eye injury [Unknown]
  - Nightmare [Unknown]
  - Fall [Recovered/Resolved]
  - Herpes zoster [Unknown]
  - Hypertension [Unknown]
  - Depression [Unknown]
  - Anxiety [Unknown]
  - Muscle spasms [Unknown]
